FAERS Safety Report 23107586 (Version 4)
Quarter: 2025Q1

REPORT INFORMATION
  Report Type: Report from Study
  Country: US (occurrence: US)
  Receive Date: 20231026
  Receipt Date: 20250310
  Transmission Date: 20250409
  Serious: Yes (Other)
  Sender: UCB
  Company Number: US-UCBSA-2023050827

PATIENT
  Age: 10 Year
  Sex: Female
  Weight: 55.7 kg

DRUGS (5)
  1. FINTEPLA [Suspect]
     Active Substance: FENFLURAMINE
     Indication: Severe myoclonic epilepsy of infancy
     Dosage: 5 MILLILITER, 2X/DAY (BID)
     Route: 048
     Dates: start: 20210610
  2. FINTEPLA [Suspect]
     Active Substance: FENFLURAMINE
     Indication: Seizure
     Route: 048
     Dates: start: 20201106
  3. FINTEPLA [Suspect]
     Active Substance: FENFLURAMINE
     Route: 048
     Dates: start: 202012
  4. FINTEPLA [Suspect]
     Active Substance: FENFLURAMINE
     Dosage: 5 MILLILITER, 2X/DAY (BID)
     Route: 048
     Dates: start: 20210513
  5. FINTEPLA [Suspect]
     Active Substance: FENFLURAMINE
     Route: 048

REACTIONS (5)
  - Mitral valve incompetence [Not Recovered/Not Resolved]
  - Pulmonary valve incompetence [Not Recovered/Not Resolved]
  - Echocardiogram abnormal [Not Recovered/Not Resolved]
  - Right ventricular systolic pressure increased [Unknown]
  - Bicuspid aortic valve [Unknown]

NARRATIVE: CASE EVENT DATE: 20230918
